FAERS Safety Report 11840532 (Version 1)
Quarter: 2015Q4

REPORT INFORMATION
  Report Type: Spontaneous
  Country: US (occurrence: None)
  Receive Date: 20151215
  Receipt Date: 20151215
  Transmission Date: 20160305
  Serious: Yes (Other)
  Sender: FDA-Public Use
  Company Number: None

PATIENT
  Age: 46 Year
  Sex: Male
  Weight: 72.12 kg

DRUGS (2)
  1. THRIVE DFT PATCH LE-VEL [Suspect]
     Active Substance: DIETARY SUPPLEMENT
     Indication: WEIGHT CONTROL
     Dosage: ONE PATCH ONCE DAILY --
     Dates: start: 20150505, end: 20150521
  2. THRIVE DFT PATCH LE-VEL [Suspect]
     Active Substance: DIETARY SUPPLEMENT
     Indication: MOOD ALTERED
     Dosage: ONE PATCH ONCE DAILY --
     Dates: start: 20150505, end: 20150521

REACTIONS (1)
  - Product label issue [None]

NARRATIVE: CASE EVENT DATE: 20151102
